FAERS Safety Report 19285746 (Version 1)
Quarter: 2021Q2

REPORT INFORMATION
  Report Type: Other
  Country: CA (occurrence: CA)
  Receive Date: 20210521
  Receipt Date: 20210521
  Transmission Date: 20210717
  Serious: Yes (Disabling)
  Sender: FDA-Public Use
  Company Number: CA-APOTEX-2021AP012067

PATIENT
  Age: 45 Year
  Sex: Female

DRUGS (1)
  1. APO?FLUTICASONE [Suspect]
     Active Substance: FLUTICASONE PROPIONATE
     Indication: SEASONAL ALLERGY
     Dosage: 1 DOSAGE FORM
     Route: 045

REACTIONS (2)
  - Perfume sensitivity [Unknown]
  - Product label issue [Unknown]
